FAERS Safety Report 15615723 (Version 2)
Quarter: 2019Q1

REPORT INFORMATION
  Report Type: Spontaneous
  Country: FR (occurrence: FR)
  Receive Date: 20181114
  Receipt Date: 20190208
  Transmission Date: 20190417
  Serious: Yes (Hospitalization)
  Sender: FDA-Public Use
  Company Number: FR-AUROBINDO-AUR-APL-2018-054722

PATIENT

DRUGS (7)
  1. PIRILENE [Concomitant]
     Active Substance: PYRAZINAMIDE
     Indication: EVIDENCE BASED TREATMENT
     Dosage: 1500 MILLIGRAM, UNK
     Route: 048
     Dates: start: 20181004, end: 20181011
  2. RIMIFON [Concomitant]
     Active Substance: ISONIAZID
     Indication: EVIDENCE BASED TREATMENT
     Dosage: 450 MILLIGRAM, UNK
     Route: 048
     Dates: start: 20181004, end: 20181011
  3. GRANUDOXY [Concomitant]
     Active Substance: DOXYCYCLINE
     Indication: TULARAEMIA
     Dosage: 200 MILLIGRAM, UNK
     Route: 048
     Dates: start: 20180928, end: 20181003
  4. PARACETAMOL [Suspect]
     Active Substance: ACETAMINOPHEN
     Indication: PAIN
     Dosage: 1 TO 2 GRAMS PER DAY
     Route: 048
     Dates: start: 20180926, end: 20181003
  5. PARACETAMOL KABI [Suspect]
     Active Substance: ACETAMINOPHEN
     Indication: PAIN
     Dosage: 1 TO 2 GRAMS PER DAY
     Route: 042
     Dates: start: 20181003, end: 20181012
  6. RIFADINE [Concomitant]
     Active Substance: RIFAMPIN
     Indication: EVIDENCE BASED TREATMENT
     Dosage: 600 MILLIGRAM, UNK
     Route: 048
     Dates: start: 20181004, end: 20181011
  7. DEXAMBUTOL [Concomitant]
     Active Substance: ETHAMBUTOL HYDROCHLORIDE
     Indication: EVIDENCE BASED TREATMENT
     Dosage: 1000 MILLIGRAM,UNK
     Route: 048
     Dates: start: 20181004, end: 20181011

REACTIONS (1)
  - Pyroglutamate increased [Recovered/Resolved]

NARRATIVE: CASE EVENT DATE: 201810
